FAERS Safety Report 24591656 (Version 2)
Quarter: 2024Q4

REPORT INFORMATION
  Report Type: Spontaneous
  Country: US (occurrence: US)
  Receive Date: 20241108
  Receipt Date: 20241111
  Transmission Date: 20250114
  Serious: No
  Sender: BRISTOL-MYERS SQUIBB COMPANY
  Company Number: US-BRISTOL-MYERS SQUIBB COMPANY-2024-174771

PATIENT
  Age: 24 Year
  Sex: Female

DRUGS (2)
  1. ORENCIA [Suspect]
     Active Substance: ABATACEPT
     Indication: Rheumatoid arthritis
     Route: 058
     Dates: start: 202410
  2. FASENRA [Concomitant]
     Active Substance: BENRALIZUMAB
     Indication: Product used for unknown indication

REACTIONS (3)
  - Asthma [Unknown]
  - Pollakiuria [Unknown]
  - Device operational issue [Unknown]

NARRATIVE: CASE EVENT DATE: 20241105
